FAERS Safety Report 6837448-1 (Version None)
Quarter: 2010Q3

REPORT INFORMATION
  Report Type: 
  Country: None (occurrence: None)
  Receive Date: 20100713
  Receipt Date: 20100708
  Transmission Date: 20110219
  Serious: Yes (Hospitalization)
  Sender: FDA-Public Use
  Company Number: FR-MERCK-1007FRA00045

PATIENT
  Age: 75 Year
  Sex: Female

DRUGS (2)
  1. JANUMET [Suspect]
     Indication: TYPE 2 DIABETES MELLITUS
     Route: 048
     Dates: start: 20090101
  2. PROPOXYPHENE [Concomitant]
     Route: 048

REACTIONS (2)
  - BALANCE DISORDER [None]
  - FALL [None]
